FAERS Safety Report 17538063 (Version 1)
Quarter: 2020Q1

REPORT INFORMATION
  Report Type: Spontaneous
  Country: JP (occurrence: JP)
  Receive Date: 20200313
  Receipt Date: 20200313
  Transmission Date: 20200409
  Serious: Yes (Other)
  Sender: FDA-Public Use
  Company Number: JP-VIIV HEALTHCARE LIMITED-JP2020JPN043108

PATIENT

DRUGS (4)
  1. HEPSERA [Suspect]
     Active Substance: ADEFOVIR DIPIVOXIL
     Dosage: UNK
     Route: 048
  2. ZEFIX [Suspect]
     Active Substance: LAMIVUDINE
     Indication: CHRONIC HEPATITIS B
     Dosage: UNK
     Route: 048
  3. HEPSERA [Suspect]
     Active Substance: ADEFOVIR DIPIVOXIL
     Indication: CHRONIC HEPATITIS B
     Dosage: UNK
     Route: 048
  4. HEPSERA [Suspect]
     Active Substance: ADEFOVIR DIPIVOXIL
     Dosage: UNK
     Route: 048

REACTIONS (8)
  - Fanconi syndrome acquired [Unknown]
  - Glucose urine [Unknown]
  - Acquired aminoaciduria [Unknown]
  - Ulna fracture [Unknown]
  - Hypophosphataemia [Recovered/Resolved]
  - Drug resistance [Unknown]
  - Back pain [Unknown]
  - Musculoskeletal pain [Unknown]
